FAERS Safety Report 5277497-0 (Version None)
Quarter: 2007Q1

REPORT INFORMATION
  Report Type: 
  Country: None (occurrence: None)
  Receive Date: 20070327
  Receipt Date: 20070316
  Transmission Date: 20070707
  Serious: Yes (Hospitalization)
  Sender: FDA-Public Use
  Company Number: GB-JNJFOC-20070303961

PATIENT
  Age: 58 Year
  Sex: Female

DRUGS (1)
  1. LOPERAMIDE HCL [Suspect]
     Indication: DIARRHOEA
     Route: 065

REACTIONS (3)
  - AMOEBIC COLITIS [None]
  - ILEUS PARALYTIC [None]
  - SEPSIS [None]
